FAERS Safety Report 10311431 (Version 1)
Quarter: 2014Q3

REPORT INFORMATION
  Report Type: Spontaneous
  Country: US (occurrence: None)
  Receive Date: 20140714
  Receipt Date: 20140714
  Transmission Date: 20150326
  Serious: Yes (Hospitalization, Other)
  Sender: FDA-Public Use
  Company Number: 2014US00647

PATIENT
  Age: 56 Year
  Sex: Male

DRUGS (1)
  1. GEMCITABINE [Suspect]
     Active Substance: GEMCITABINE\GEMCITABINE HYDROCHLORIDE
     Indication: PANCREATIC CARCINOMA
     Dosage: 1000MG/M2 IV ON DAYS 1, 8, 15 ON A 28-DAY CYCLE FOR SIX CYCLES
     Route: 042

REACTIONS (10)
  - Orthopnoea [None]
  - Mitral valve incompetence [None]
  - Pancreatic carcinoma recurrent [None]
  - Cardiac failure congestive [None]
  - Hypokinesia [None]
  - Cardiomyopathy [None]
  - Cardiac murmur [None]
  - Oedema [None]
  - Ejection fraction decreased [None]
  - Pleural effusion [None]
